FAERS Safety Report 4833288-3 (Version None)
Quarter: 2005Q4

REPORT INFORMATION
  Report Type: 
  Country: None (occurrence: None)
  Receive Date: 20051121
  Receipt Date: 20051031
  Transmission Date: 20060501
  Serious: Yes (Hospitalization, Disabling, Other)
  Sender: FDA-Public Use
  Company Number: US-ABBOTT-05P-163-0316036-00

PATIENT
  Sex: Female
  Weight: 149.5 kg

DRUGS (19)
  1. RITONAVIR [Suspect]
     Indication: HIV INFECTION
     Route: 048
     Dates: start: 20041201, end: 20050701
  2. RITONAVIR [Suspect]
     Route: 048
     Dates: start: 20050701, end: 20050801
  3. ADVAIR DISKUS 100/50 [Interacting]
     Indication: ASTHMA
     Dosage: 500/50MCG, TWICE DAILY
     Route: 055
     Dates: end: 20050801
  4. ADVAIR DISKUS 100/50 [Interacting]
     Dosage: 100/50MCG
     Route: 055
     Dates: start: 20050801, end: 20051001
  5. FUROSEMIDE [Concomitant]
     Indication: DRUG USE FOR UNKNOWN INDICATION
  6. SPIRONOLACTONE [Concomitant]
     Indication: DRUG USE FOR UNKNOWN INDICATION
  7. METOLAZONE [Concomitant]
     Indication: DRUG USE FOR UNKNOWN INDICATION
  8. WARFARIN SODIUM [Concomitant]
     Indication: DRUG USE FOR UNKNOWN INDICATION
  9. DIGOXIN [Concomitant]
     Indication: DRUG USE FOR UNKNOWN INDICATION
  10. CARVEDILOL [Concomitant]
     Indication: DRUG USE FOR UNKNOWN INDICATION
  11. CAPTOPRIL [Concomitant]
     Indication: DRUG USE FOR UNKNOWN INDICATION
  12. POSTASSIUM SALT [Concomitant]
     Indication: DRUG USE FOR UNKNOWN INDICATION
  13. MINOCYCLINE [Concomitant]
     Indication: DRUG USE FOR UNKNOWN INDICATION
  14. SERTRALINE HYDROCHLORIDE [Concomitant]
     Indication: DRUG USE FOR UNKNOWN INDICATION
  15. TRIZIVIR [Concomitant]
     Indication: DRUG USE FOR UNKNOWN INDICATION
  16. BUPROPION HYDROCHLORIDE [Concomitant]
     Indication: DRUG USE FOR UNKNOWN INDICATION
  17. MONTELUKAST SODIUM [Concomitant]
     Indication: DRUG USE FOR UNKNOWN INDICATION
  18. TENOFOVIR DISOPROXIL FUMARATE [Concomitant]
     Indication: DRUG USE FOR UNKNOWN INDICATION
  19. ALBUTEROL SULFATE HFA [Concomitant]
     Indication: DRUG USE FOR UNKNOWN INDICATION

REACTIONS (7)
  - ASTHMA [None]
  - CUSHING'S SYNDROME [None]
  - DRUG INTERACTION [None]
  - HYDROXYCORTICOSTEROIDS INCREASED [None]
  - SYNCOPE [None]
  - URINE ANALYSIS ABNORMAL [None]
  - WEIGHT INCREASED [None]
